FAERS Safety Report 4754357-2 (Version None)
Quarter: 2005Q3

REPORT INFORMATION
  Report Type: 
  Country: None (occurrence: None)
  Receive Date: 20050825
  Receipt Date: 20050815
  Transmission Date: 20060218
  Serious: Yes (Hospitalization)
  Sender: FDA-Public Use
  Company Number: B0390847A

PATIENT
  Age: 35 Year
  Sex: Female

DRUGS (2)
  1. LITHIUM CARBONATE (LITHIUM CARBONATE) (FORMULATION UNKNOWN) (GENERIC) [Suspect]
     Indication: BIPOLAR DISORDER
     Dosage: SEE DOSAGE TEXT
  2. RISPERIDONE (FORMULATION UNKNOWN) (RISPERIDONE) [Suspect]
     Indication: BIPOLAR DISORDER

REACTIONS (16)
  - CEREBELLAR SYNDROME [None]
  - CEREBRAL DISORDER [None]
  - COMA [None]
  - DIARRHOEA [None]
  - DYSARTHRIA [None]
  - EXTENSOR PLANTAR RESPONSE [None]
  - HAEMODIALYSIS [None]
  - HAEMODYNAMIC INSTABILITY [None]
  - MULTI-ORGAN DISORDER [None]
  - NEUROLEPTIC MALIGNANT SYNDROME [None]
  - NOSOCOMIAL INFECTION [None]
  - OVERDOSE [None]
  - RENAL FAILURE ACUTE [None]
  - SOMNOLENCE [None]
  - THERAPEUTIC AGENT TOXICITY [None]
  - VOMITING [None]
